FAERS Safety Report 17033918 (Version 4)
Quarter: 2020Q1

REPORT INFORMATION
  Report Type: Report from Study
  Country: FR (occurrence: FR)
  Receive Date: 20191114
  Receipt Date: 20200217
  Transmission Date: 20200409
  Serious: Yes (Hospitalization)
  Sender: FDA-Public Use
  Company Number: FR-KARYOPHARM THERAPEUTICS, INC.-2019KPT000305

PATIENT
  Age: 59 Year
  Sex: Male
  Weight: 70 kg

DRUGS (11)
  1. DEXAMETHASONE. [Suspect]
     Active Substance: DEXAMETHASONE
     Indication: PLASMA CELL MYELOMA
     Dosage: 20 MG, 2X/WEEK
     Route: 048
     Dates: start: 20180709, end: 20190611
  2. PRIMPERAN [Concomitant]
     Active Substance: METOCLOPRAMIDE HYDROCHLORIDE
     Indication: PROPHYLAXIS
     Dosage: 10 MG, PRN
     Route: 048
     Dates: start: 20180709
  3. SELINEXOR [Suspect]
     Active Substance: SELINEXOR
     Indication: PLASMA CELL MYELOMA
     Dosage: 100 MG, WEEKLY
     Route: 048
     Dates: start: 20180709
  4. BORTEZOMIB. [Suspect]
     Active Substance: BORTEZOMIB
     Dosage: 1.3 MG/M2, WEEKLY X4 WEEKS, 1 WEEK OFF
     Route: 058
     Dates: start: 20190917
  5. ZELITREX [Concomitant]
     Active Substance: VALACYCLOVIR HYDROCHLORIDE
     Indication: PROPHYLAXIS
     Dosage: 500 MG, BID
     Route: 048
     Dates: start: 20180709
  6. TRAMADOL. [Concomitant]
     Active Substance: TRAMADOL
     Indication: PROPHYLAXIS
     Dosage: 50 MG, PRN
     Route: 048
     Dates: start: 20180709
  7. INNOHEP [Concomitant]
     Active Substance: TINZAPARIN SODIUM
     Indication: PRODUCT USED FOR UNKNOWN INDICATION
     Dosage: UNK
     Route: 058
     Dates: start: 20190214
  8. INEXIUM [Concomitant]
     Active Substance: ESOMEPRAZOLE
     Indication: PROPHYLAXIS
     Dosage: 20 MG, QD
     Route: 048
     Dates: start: 20180709
  9. DEXAMETHASONE. [Suspect]
     Active Substance: DEXAMETHASONE
     Dosage: 20 MG, WEEKLY
     Route: 048
     Dates: start: 20190917
  10. SELINEXOR [Suspect]
     Active Substance: SELINEXOR
     Dosage: 60 MG, WEEKLY
     Route: 048
     Dates: start: 20190917
  11. BORTEZOMIB. [Suspect]
     Active Substance: BORTEZOMIB
     Indication: PLASMA CELL MYELOMA
     Dosage: 1.3 MG/M2, WEEKLY X4 WEEKS, 1 WEEK OFF
     Route: 058
     Dates: start: 20180709, end: 20190611

REACTIONS (1)
  - Pneumonia pneumococcal [Recovered/Resolved]

NARRATIVE: CASE EVENT DATE: 20190613
